FAERS Safety Report 12113150 (Version 2)
Quarter: 2017Q2

REPORT INFORMATION
  Report Type: Spontaneous
  Country: US (occurrence: US)
  Receive Date: 20160225
  Receipt Date: 20170411
  Transmission Date: 20170829
  Serious: No
  Sender: FDA-Public Use
  Company Number: US-CELGENEUS-USA-2016024897

PATIENT
  Age: 69 Year
  Sex: Male

DRUGS (3)
  1. LISINOPRIL/HCTZ [Concomitant]
     Active Substance: HYDROCHLOROTHIAZIDE\LISINOPRIL
     Indication: HYPERTENSION
     Dosage: 10/12.5 MILLIGRAM
     Route: 048
     Dates: start: 201601
  2. OTEZLA [Suspect]
     Active Substance: APREMILAST
     Indication: PSORIATIC ARTHROPATHY
  3. OTEZLA [Suspect]
     Active Substance: APREMILAST
     Indication: PSORIASIS
     Dosage: 60 MILLIGRAM
     Route: 048
     Dates: start: 201601

REACTIONS (2)
  - Viral diarrhoea [Recovered/Resolved]
  - Headache [Recovered/Resolved]

NARRATIVE: CASE EVENT DATE: 20160302
